FAERS Safety Report 6690636-X (Version None)
Quarter: 2010Q2

REPORT INFORMATION
  Report Type: 
  Country: None (occurrence: None)
  Receive Date: 20100421
  Receipt Date: 20100415
  Transmission Date: 20101027
  Serious: Yes (Death, Hospitalization, Other)
  Sender: FDA-Public Use
  Company Number: CA-ABBOTT-10P-028-0628121-00

PATIENT
  Sex: Male

DRUGS (4)
  1. KALETRA [Suspect]
     Indication: ANTIRETROVIRAL THERAPY
     Dates: start: 20090314
  2. KALETRA [Suspect]
     Indication: HIV INFECTION
  3. TRUVADA [Concomitant]
     Indication: ANTIRETROVIRAL THERAPY
     Dosage: 200/300 MG 1 TAB
  4. TRUVADA [Concomitant]
     Indication: HIV INFECTION

REACTIONS (6)
  - HEPATIC CIRRHOSIS [None]
  - HEPATITIS C [None]
  - LIVER DISORDER [None]
  - LYMPHOMA [None]
  - NEOPLASM [None]
  - WEIGHT DECREASED [None]
